FAERS Safety Report 12504618 (Version 2)
Quarter: 2016Q3

REPORT INFORMATION
  Report Type: Spontaneous
  Country: US (occurrence: US)
  Receive Date: 20160628
  Receipt Date: 20160802
  Transmission Date: 20161109
  Serious: Yes (Other)
  Sender: FDA-Public Use
  Company Number: US-JNJFOC-20160619760

PATIENT
  Age: 49 Year
  Sex: Male

DRUGS (6)
  1. BACTRIM [Suspect]
     Active Substance: SULFAMETHOXAZOLE\TRIMETHOPRIM
     Indication: POST PROCEDURAL INFECTION
     Route: 065
  2. RIFAMPIN. [Interacting]
     Active Substance: RIFAMPIN
     Indication: POST PROCEDURAL INFECTION
     Route: 065
  3. RIFAMPIN. [Interacting]
     Active Substance: RIFAMPIN
     Indication: STAPHYLOCOCCAL INFECTION
     Route: 065
  4. RIVAROXABAN [Suspect]
     Active Substance: RIVAROXABAN
     Indication: EMBOLISM VENOUS
     Route: 048
  5. RIVAROXABAN [Suspect]
     Active Substance: RIVAROXABAN
     Indication: DEEP VEIN THROMBOSIS
     Route: 048
  6. BACTRIM [Suspect]
     Active Substance: SULFAMETHOXAZOLE\TRIMETHOPRIM
     Indication: STAPHYLOCOCCAL INFECTION
     Route: 065

REACTIONS (3)
  - Pulmonary embolism [Recovered/Resolved]
  - Treatment failure [Unknown]
  - Drug interaction [Unknown]
